FAERS Safety Report 8983423 (Version 1)
Quarter: 2012Q4

REPORT INFORMATION
  Report Type: 
  Country: JP (occurrence: JP)
  Receive Date: 20121224
  Receipt Date: 20121224
  Transmission Date: 20130627
  Serious: Yes (Other)
  Sender: FDA-Public Use
  Company Number: JP-AMGEN-JPNCT2012082621

PATIENT

DRUGS (1)
  1. PANITUMUMAB [Suspect]
     Indication: NEOPLASM
     Dosage: 2.5 mg/kg, qwk
     Route: 042

REACTIONS (1)
  - Oedema [Unknown]
